FAERS Safety Report 11574380 (Version 1)
Quarter: 2015Q3

REPORT INFORMATION
  Report Type: Spontaneous
  Country: US (occurrence: None)
  Receive Date: 20150928
  Receipt Date: 20150928
  Transmission Date: 20151125
  Serious: No
  Sender: FDA-Public Use
  Company Number: None

PATIENT
  Age: 62 Year
  Sex: Female
  Weight: 72.58 kg

DRUGS (3)
  1. VITAMINS [Concomitant]
     Active Substance: VITAMINS
  2. TOPROL XL [Suspect]
     Active Substance: METOPROLOL SUCCINATE
     Indication: CARDIAC MURMUR
     Dosage: 1 PILL A DAY
     Route: 048
     Dates: start: 20150920, end: 20150926
  3. TOPROL XL [Suspect]
     Active Substance: METOPROLOL SUCCINATE
     Indication: RHEUMATIC FEVER
     Dosage: 1 PILL A DAY
     Route: 048
     Dates: start: 20150920, end: 20150926

REACTIONS (10)
  - Abnormal dreams [None]
  - Arthralgia [None]
  - Fatigue [None]
  - Product quality issue [None]
  - Chest pain [None]
  - Dyspnoea [None]
  - Feeling abnormal [None]
  - Hypertension [None]
  - Headache [None]
  - Product formulation issue [None]

NARRATIVE: CASE EVENT DATE: 20150926
